FAERS Safety Report 5705692-2 (Version None)
Quarter: 2008Q2

REPORT INFORMATION
  Report Type: 
  Country: None (occurrence: None)
  Receive Date: 20080415
  Receipt Date: 20080411
  Transmission Date: 20081010
  Serious: Yes (Other)
  Sender: FDA-Public Use
  Company Number: A0722921A

PATIENT
  Age: 54 Year
  Sex: Male
  Weight: 45 kg

DRUGS (4)
  1. NIQUITIN [Suspect]
     Indication: SMOKING CESSATION THERAPY
     Route: 062
     Dates: start: 20080325
  2. TEGRETOL [Concomitant]
     Dosage: 250MG PER DAY
  3. FORMOTEROL FUMARATE [Concomitant]
  4. PREDNISONE [Concomitant]
     Dosage: 2TAB PER DAY

REACTIONS (3)
  - INTENTIONAL DRUG MISUSE [None]
  - MYOCARDIAL INFARCTION [None]
  - TACHYCARDIA [None]
